FAERS Safety Report 16741818 (Version 5)
Quarter: 2020Q4

REPORT INFORMATION
  Report Type: Report from Study
  Country: BR (occurrence: BR)
  Receive Date: 20190826
  Receipt Date: 20201028
  Transmission Date: 20210113
  Serious: Yes (Disabling)
  Sender: FDA-Public Use
  Company Number: BR-ROCHE-2380075

PATIENT
  Age: 65 Year
  Sex: Female
  Weight: 51 kg

DRUGS (47)
  1. TRASTUZUMAB. [Suspect]
     Active Substance: TRASTUZUMAB
     Indication: HER2 POSITIVE BREAST CANCER
     Dosage: 8 MG/KG INITIAL DOSE AND 4 MG/KG AS LOADING DOSES?DATE OF MOST RECENT DOSE (408 MG) PRIOR TO EVENT O
     Route: 042
     Dates: start: 20190718
  2. DEXAMETHASONE. [Concomitant]
     Active Substance: DEXAMETHASONE
     Route: 042
     Dates: start: 20190718, end: 20190718
  3. DEXAMETHASONE. [Concomitant]
     Active Substance: DEXAMETHASONE
     Route: 042
     Dates: start: 20190809, end: 20190809
  4. DIPHENHYDRAMINE. [Concomitant]
     Active Substance: DIPHENHYDRAMINE
     Dates: start: 20190802, end: 20190802
  5. DIPYRONE [Concomitant]
     Active Substance: DIPYRONE
     Dates: start: 20190809, end: 20190814
  6. CEFUROXIME. [Concomitant]
     Active Substance: CEFUROXIME
     Dates: start: 20190809, end: 20190815
  7. CYCLOPHOSPHAMIDE. [Suspect]
     Active Substance: CYCLOPHOSPHAMIDE
     Indication: HER2 POSITIVE BREAST CANCER
     Dosage: DATE OF MOST RECENT DOSE (882MG) PRIOR TO EVENT ONSET: 03/JUL/2019.
     Route: 042
     Dates: start: 20190521
  8. ONDANSETRON [Concomitant]
     Active Substance: ONDANSETRON
     Indication: VOMITING
     Dates: start: 20190703, end: 20190703
  9. DOMPERIDONE [Concomitant]
     Active Substance: DOMPERIDONE
     Indication: ABDOMINAL PAIN
     Dates: start: 20190625
  10. DEXAMETHASONE. [Concomitant]
     Active Substance: DEXAMETHASONE
     Route: 042
     Dates: start: 20190802, end: 20190802
  11. METHYLPREDNISOLONE. [Concomitant]
     Active Substance: METHYLPREDNISOLONE
     Indication: MYOCARDITIS
     Route: 042
     Dates: start: 20190809, end: 20190813
  12. BISACODYL. [Concomitant]
     Active Substance: BISACODYL
     Indication: CONSTIPATION PROPHYLAXIS
     Dates: start: 20190811, end: 20190811
  13. MORPHINE SULPHATE [Concomitant]
     Active Substance: MORPHINE SULFATE
     Dates: start: 20190810, end: 20190812
  14. RANITIDINE. [Concomitant]
     Active Substance: RANITIDINE
     Dosage: PRE INFUSION
     Dates: start: 20190725, end: 20190725
  15. FILGRASTIM [Concomitant]
     Active Substance: FILGRASTIM
     Indication: NEUTROPENIA
     Dates: start: 20190704, end: 20190710
  16. DIPHENHYDRAMINE. [Concomitant]
     Active Substance: DIPHENHYDRAMINE
     Dates: start: 20190725, end: 20190725
  17. DIPHENHYDRAMINE. [Concomitant]
     Active Substance: DIPHENHYDRAMINE
     Dates: start: 20190809, end: 20190809
  18. LACTULOSE. [Concomitant]
     Active Substance: LACTULOSE
     Indication: CONSTIPATION PROPHYLAXIS
     Dates: start: 20190811
  19. FUROSEMIDE. [Concomitant]
     Active Substance: FUROSEMIDE
     Indication: MYOCARDITIS
     Dates: start: 20190812, end: 20190815
  20. AMLODIPINE [Concomitant]
     Active Substance: AMLODIPINE BESYLATE
     Indication: MYOCARDITIS
     Dates: start: 20190814, end: 20190814
  21. RANITIDINE. [Concomitant]
     Active Substance: RANITIDINE
     Dosage: PRE INFUSION
     Dates: start: 20190718, end: 20190718
  22. DIPHENHYDRAMINE. [Concomitant]
     Active Substance: DIPHENHYDRAMINE
     Dates: start: 20190718, end: 20190718
  23. ENOXAPARIN [Concomitant]
     Active Substance: ENOXAPARIN
     Dates: start: 20190811, end: 20190815
  24. METHYLPREDNISOLONE. [Concomitant]
     Active Substance: METHYLPREDNISOLONE
     Indication: CARDIAC FAILURE
     Route: 042
     Dates: start: 20190809, end: 20190809
  25. PERTUZUMAB. [Suspect]
     Active Substance: PERTUZUMAB
     Indication: HER2 POSITIVE BREAST CANCER
     Dosage: INITIAL 840-MG IV LOADING DOSE AND 420 MG AS LOADING DOSE?DATE OF MOST RECENT DOSE (840 MG) PRIOR TO
     Route: 042
     Dates: start: 20190718
  26. RANITIDINE. [Concomitant]
     Active Substance: RANITIDINE
     Indication: GASTRITIS
     Dates: start: 20190625
  27. RANITIDINE. [Concomitant]
     Active Substance: RANITIDINE
     Dosage: PRE INFUSION
     Dates: start: 20190802, end: 20190802
  28. RANITIDINE. [Concomitant]
     Active Substance: RANITIDINE
     Dosage: PRE INFUSION
     Dates: start: 20190809, end: 20190809
  29. FUROSEMIDE. [Concomitant]
     Active Substance: FUROSEMIDE
     Indication: POLYURIA
  30. FENOTEROL;IPRATROPIUM [Concomitant]
     Active Substance: FENOTEROL\IPRATROPIUM
     Indication: DYSPNOEA
     Dates: start: 20190809, end: 20190814
  31. PARACETAMOL [Concomitant]
     Active Substance: ACETAMINOPHEN
     Dates: start: 20190810, end: 20190810
  32. LOSARTAN. [Concomitant]
     Active Substance: LOSARTAN
     Dates: start: 20190810, end: 20190815
  33. PARACETAMOL+CODEIN [Concomitant]
     Active Substance: ACETAMINOPHEN\CODEINE PHOSPHATE
     Dates: start: 20190814, end: 20190814
  34. METHYLPREDNISOLONE. [Concomitant]
     Active Substance: METHYLPREDNISOLONE
     Route: 042
     Dates: start: 20190810, end: 20190810
  35. METHYLPREDNISOLONE. [Concomitant]
     Active Substance: METHYLPREDNISOLONE
     Route: 042
     Dates: start: 20190811, end: 20190811
  36. DOXORUBICIN [Suspect]
     Active Substance: DOXORUBICIN
     Indication: HER2 POSITIVE BREAST CANCER
     Dosage: DATE OF MOST RECENT DOSE (88.2MG) PRIOR TO EVENT ONSET: 03/JUL/2019.
     Route: 042
     Dates: start: 20190521
  37. PACLITAXEL. [Suspect]
     Active Substance: PACLITAXEL
     Indication: HER2 POSITIVE BREAST CANCER
     Dosage: DATE OF MOST RECENT DOSE (114.4 MG) PRIOR TO EVENT ONSET: 18/JUL/2019
     Route: 042
     Dates: start: 20190718
  38. DEXAMETHASONE. [Concomitant]
     Active Substance: DEXAMETHASONE
     Route: 042
     Dates: start: 20190725, end: 20190725
  39. AMLODIPINE [Concomitant]
     Active Substance: AMLODIPINE BESYLATE
     Indication: HYPERTENSION
  40. ENALAPRIL [Concomitant]
     Active Substance: ENALAPRIL
     Indication: MYOCARDITIS
     Dates: start: 20190812
  41. ATEZOLIZUMAB. [Suspect]
     Active Substance: ATEZOLIZUMAB
     Indication: HER2 POSITIVE BREAST CANCER
     Dosage: DATE OF MOST RECENT DOSE PRIOR TO EVENT ONSET:16/JUL//2019
     Route: 042
     Dates: start: 20190521
  42. ONDANSETRON [Concomitant]
     Active Substance: ONDANSETRON
     Dates: start: 20190812, end: 20190812
  43. OMEPRAZOL [Concomitant]
     Active Substance: OMEPRAZOLE
     Indication: GASTRITIS
     Dates: start: 20190625
  44. FILGRASTIM [Concomitant]
     Active Substance: FILGRASTIM
     Dates: start: 20190619, end: 20190625
  45. PACKED RED BLOOD CELL [Concomitant]
     Active Substance: HUMAN RED BLOOD CELL
     Indication: ANAEMIA
     Dates: start: 20190805, end: 20190805
  46. METOCLOPRAMIDE. [Concomitant]
     Active Substance: METOCLOPRAMIDE
     Dates: start: 20190810, end: 20190813
  47. NISTATIN [Concomitant]
     Active Substance: NYSTATIN
     Dates: start: 20190813, end: 20190815

REACTIONS (1)
  - Meibomianitis [Not Recovered/Not Resolved]

NARRATIVE: CASE EVENT DATE: 20190720
